FAERS Safety Report 4656826-2 (Version None)
Quarter: 2005Q2

REPORT INFORMATION
  Report Type: 
  Country: None (occurrence: None)
  Receive Date: 20050505
  Receipt Date: 20050428
  Transmission Date: 20051028
  Serious: No
  Sender: FDA-Public Use
  Company Number: 2005CG00840

PATIENT
  Age: 57 Year
  Sex: Male

DRUGS (2)
  1. ZOMIG [Suspect]
     Indication: MIGRAINE
     Dosage: 2.5 MG PRN PO
     Route: 048
     Dates: start: 20000101
  2. DEROXAT [Suspect]
     Dates: start: 20050415, end: 20050425

REACTIONS (3)
  - ARRHYTHMIA [None]
  - DRUG INTERACTION [None]
  - EXTRASYSTOLES [None]
